FAERS Safety Report 6638335-4 (Version None)
Quarter: 2010Q1

REPORT INFORMATION
  Report Type: 
  Country: None (occurrence: None)
  Receive Date: 20100317
  Receipt Date: 20100303
  Transmission Date: 20100710
  Serious: Yes (Hospitalization)
  Sender: FDA-Public Use
  Company Number: IE-MEDIMMUNE-MEDI-0009996

PATIENT
  Sex: Male
  Weight: 8.1 kg

DRUGS (3)
  1. SYNAGIS [Suspect]
     Indication: BRONCHIOLITIS
     Route: 030
     Dates: start: 20090201, end: 20091101
  2. KAPSOVIT [Concomitant]
     Route: 048
  3. FERROUS SULFATE TAB [Concomitant]
     Route: 048

REACTIONS (3)
  - BRONCHIOLITIS [None]
  - LOBAR PNEUMONIA [None]
  - RESPIRATORY SYNCYTIAL VIRUS TEST NEGATIVE [None]
